FAERS Safety Report 17744050 (Version 1)
Quarter: 2020Q2

REPORT INFORMATION
  Report Type: Spontaneous
  Country: DE (occurrence: DE)
  Receive Date: 20200505
  Receipt Date: 20200505
  Transmission Date: 20200714
  Serious: Yes (Life-Threatening, Hospitalization, Other)
  Sender: FDA-Public Use
  Company Number: NVSC2020DE116398

PATIENT
  Age: 24 Year
  Sex: Male

DRUGS (1)
  1. PEGFILGRASTIM [Suspect]
     Active Substance: PEGFILGRASTIM
     Indication: LEUKOPENIA
     Dosage: 2 INJECTION
     Route: 065

REACTIONS (5)
  - Hyperleukocytosis [Unknown]
  - Nausea [Unknown]
  - Vomiting [Unknown]
  - Shock haemorrhagic [Unknown]
  - Splenic rupture [Unknown]
